FAERS Safety Report 6671244-3 (Version None)
Quarter: 2010Q2

REPORT INFORMATION
  Report Type: 
  Country: None (occurrence: None)
  Receive Date: 20100406
  Receipt Date: 20100406
  Transmission Date: 20101027
  Serious: Yes (Disabling, Other)
  Sender: FDA-Public Use
  Company Number: None

PATIENT
  Age: 59 Year
  Sex: Female
  Weight: 65.7716 kg

DRUGS (2)
  1. NEUTROGENA SUNBLOCK 70 W/ HELIOPLEX [Suspect]
     Indication: CAUSTIC INJURY
     Dosage: SMALL AMOUNTS USED 1X
  2. NEUTROGENA SUNBLOCK 70 W/ HELIOPLEX [Suspect]
     Indication: EYE BURNS
     Dosage: SMALL AMOUNTS USED 1X

REACTIONS (3)
  - ACCIDENTAL EXPOSURE [None]
  - EYE IRRITATION [None]
  - VISUAL IMPAIRMENT [None]
